FAERS Safety Report 12180399 (Version 1)
Quarter: 2016Q1

REPORT INFORMATION
  Report Type: Spontaneous
  Country: US (occurrence: US)
  Receive Date: 20160315
  Receipt Date: 20160315
  Transmission Date: 20160526
  Serious: No
  Sender: FDA-Public Use
  Company Number: US-HORIZON-RAV-0044-2016

PATIENT
  Age: 8 Year
  Sex: Male

DRUGS (1)
  1. RAVICTI [Suspect]
     Active Substance: GLYCEROL PHENYLBUTYRATE
     Indication: UREA CYCLE ENZYME DEFICIENCY
     Dosage: 2 ML THREE TIMES DAILY
     Dates: start: 20150130

REACTIONS (4)
  - Somnolence [Unknown]
  - Gastrointestinal infection [Unknown]
  - Decreased appetite [Unknown]
  - Fluid intake reduced [Unknown]
